FAERS Safety Report 7832564-X (Version None)
Quarter: 2011Q4

REPORT INFORMATION
  Report Type: 
  Country: None (occurrence: None)
  Receive Date: 20111024
  Receipt Date: 20111014
  Transmission Date: 20120403
  Serious: Yes (Hospitalization)
  Sender: FDA-Public Use
  Company Number: US-BIOGENIDEC-2011BI039855

PATIENT
  Sex: Female

DRUGS (4)
  1. TYSABRI [Suspect]
     Indication: MULTIPLE SCLEROSIS
     Route: 042
     Dates: start: 20071018, end: 20081223
  2. AMANTADINE HCL [Concomitant]
     Indication: FATIGUE
  3. TYSABRI [Suspect]
     Route: 042
     Dates: start: 20100827, end: 20110211
  4. NEURONTIN [Concomitant]
     Indication: NEUROPATHY PERIPHERAL

REACTIONS (6)
  - VICTIM OF CRIME [None]
  - CHEST PAIN [None]
  - HEART RATE IRREGULAR [None]
  - DECUBITUS ULCER [None]
  - PAIN [None]
  - EXTRASYSTOLES [None]
